FAERS Safety Report 25624463 (Version 1)
Quarter: 2025Q3

REPORT INFORMATION
  Report Type: Report from Study
  Country: US (occurrence: US)
  Receive Date: 20250730
  Receipt Date: 20250730
  Transmission Date: 20251020
  Serious: Yes (Other)
  Sender: ABBVIE
  Company Number: US-ABBVIE-6349001

PATIENT
  Age: 70 Year
  Sex: Male

DRUGS (1)
  1. SKYRIZI [Suspect]
     Active Substance: RISANKIZUMAB-RZAA
     Indication: Crohn^s disease
     Route: 058
     Dates: start: 20240809, end: 20250405

REACTIONS (8)
  - Cerebrovascular accident [Unknown]
  - Mood swings [Not Recovered/Not Resolved]
  - Rash papular [Not Recovered/Not Resolved]
  - Contusion [Recovering/Resolving]
  - Drug ineffective [Not Recovered/Not Resolved]
  - Rash macular [Unknown]
  - Unevaluable event [Unknown]
  - Nephrolithiasis [Unknown]

NARRATIVE: CASE EVENT DATE: 20240801
